FAERS Safety Report 10081588 (Version 1)
Quarter: 2014Q2

REPORT INFORMATION
  Report Type: Spontaneous
  Country: US (occurrence: US)
  Receive Date: 20140416
  Receipt Date: 20140416
  Transmission Date: 20141212
  Serious: No
  Sender: FDA-Public Use
  Company Number: US-BAYER-2014-051541

PATIENT
  Sex: Female

DRUGS (2)
  1. CIPRO [Suspect]
     Indication: DIVERTICULITIS
     Dosage: 500 MG, BID
     Dates: start: 20140319
  2. FLAGYL [Suspect]
     Indication: DIVERTICULITIS
     Dosage: 250 MG, QID
     Dates: start: 20140319

REACTIONS (1)
  - Fungal infection [None]
